FAERS Safety Report 12492808 (Version 2)
Quarter: 2016Q3

REPORT INFORMATION
  Report Type: Report from Study
  Country: PL (occurrence: PL)
  Receive Date: 20160623
  Receipt Date: 20160705
  Transmission Date: 20161109
  Serious: Yes (Hospitalization)
  Sender: FDA-Public Use
  Company Number: PL-ROCHE-1778587

PATIENT
  Age: 79 Year
  Sex: Male
  Weight: 81 kg

DRUGS (6)
  1. CARDURA XL [Concomitant]
     Active Substance: DOXAZOSIN MESYLATE
     Route: 065
  2. CALPEROS [Concomitant]
     Active Substance: CALCIUM CARBONATE
     Route: 065
  3. VEMURAFENIB [Suspect]
     Active Substance: VEMURAFENIB
     Indication: MALIGNANT MELANOMA
     Dosage: TWICE DAILY FROM DAY 1 TO DAY 28 OF EACH 28 DAY CYCLE?LAST DOSE PRIOR TO EVENT: 13/JUN/2016,
     Route: 048
     Dates: start: 20160531
  4. ATORIS [Concomitant]
     Active Substance: ATORVASTATIN CALCIUM
     Route: 065
  5. NEBIVOLOL. [Concomitant]
     Active Substance: NEBIVOLOL
     Route: 065
  6. COBIMETINIB [Suspect]
     Active Substance: COBIMETINIB
     Indication: MALIGNANT MELANOMA
     Dosage: DAILY FROM DAYS 1 TO 21, FOLLOWED BY A 7 DAY BREAK (DAYS 22 TO 28) IN EACH 28 DAYS CYCLE?LAST DOSE P
     Route: 048
     Dates: start: 20160531

REACTIONS (1)
  - Blood creatine phosphokinase increased [Not Recovered/Not Resolved]

NARRATIVE: CASE EVENT DATE: 20160613
